FAERS Safety Report 5168144-7 (Version None)
Quarter: 2006Q4

REPORT INFORMATION
  Report Type: 
  Country: None (occurrence: None)
  Receive Date: 20061130
  Receipt Date: 20061024
  Transmission Date: 20070319
  Serious: Yes (Death)
  Sender: FDA-Public Use
  Company Number: AND_AAPCC_2006_1034

PATIENT
  Age: 5 Year
  Sex: Male

DRUGS (3)
  1. ACETAMINOPHEN AND HYDROCODONE BITARTRATE [Suspect]
     Dosage: DF, 047
  2. CLOZAPINE [Suspect]
     Dosage: DF, 047
  3. THIORIDAZINE HCL [Suspect]
     Dosage: DF, 047

REACTIONS (9)
  - ANOXIA [None]
  - BLOOD GLUCOSE DECREASED [None]
  - CONVULSION [None]
  - ELECTROENCEPHALOGRAM ABNORMAL [None]
  - INJURY [None]
  - TACHYCARDIA [None]
  - THERAPY NON-RESPONDER [None]
  - UNRESPONSIVE TO STIMULI [None]
  - VOMITING [None]
